FAERS Safety Report 21729398 (Version 1)
Quarter: 2022Q4

REPORT INFORMATION
  Report Type: Report from Study
  Country: CA (occurrence: CA)
  Receive Date: 20221214
  Receipt Date: 20221214
  Transmission Date: 20230113
  Serious: Yes (Death, Hospitalization)
  Sender: FDA-Public Use
  Company Number: CA-002147023-NVSC2021CA006350

PATIENT
  Age: 65 Year
  Sex: Female

DRUGS (12)
  1. PLACEBO [Suspect]
     Active Substance: UNSPECIFIED INGREDIENT
     Indication: Secondary progressive multiple sclerosis
     Dosage: UNK
     Route: 048
     Dates: start: 20150121, end: 20160222
  2. SIPONIMOD [Suspect]
     Active Substance: SIPONIMOD
     Indication: Secondary progressive multiple sclerosis
     Dosage: 2 MG, QD
     Route: 048
     Dates: start: 20161115, end: 20201109
  3. SIPONIMOD [Suspect]
     Active Substance: SIPONIMOD
     Dosage: 0.25 MG
     Route: 048
     Dates: start: 20210105
  4. SIPONIMOD [Suspect]
     Active Substance: SIPONIMOD
     Dosage: 2 MG, QD
     Route: 048
     Dates: start: 20210112
  5. VITAMIN D [Concomitant]
     Active Substance: VITAMIN D NOS
     Indication: Supplementation therapy
     Dosage: 10000 U, QW
     Route: 048
     Dates: start: 2010
  6. VENLAFAXINE [Concomitant]
     Active Substance: VENLAFAXINE HYDROCHLORIDE
     Indication: Depression
     Dosage: 150 MG, QD
     Route: 048
     Dates: start: 2002
  7. PMS-CYCLOBENZAPRINE [Concomitant]
     Indication: Muscle spasticity
     Dosage: 10 MG, QD
     Route: 048
     Dates: start: 2014, end: 2014
  8. CANNABIS SATIVA SUBSP. INDICA TOP [Concomitant]
     Active Substance: CANNABIS SATIVA SUBSP. INDICA TOP
     Indication: Back pain
     Dosage: 1 UNK, PRN
     Route: 048
     Dates: start: 20170501, end: 20170831
  9. ALENDRONATE [Concomitant]
     Active Substance: ALENDRONATE SODIUM
     Indication: Osteoporosis
     Dosage: 70 MG, QW
     Route: 048
     Dates: start: 2012, end: 201206
  10. FLEXERIL [Concomitant]
     Active Substance: CYCLOBENZAPRINE HYDROCHLORIDE
     Indication: Back pain
     Dosage: 5 MG, QD
     Route: 048
     Dates: start: 201712
  11. BACLOFEN [Concomitant]
     Active Substance: BACLOFEN
     Indication: Muscle spasticity
     Dosage: 5 MG, QHS
     Route: 048
     Dates: start: 202205, end: 20220703
  12. BACLOFEN [Concomitant]
     Active Substance: BACLOFEN
     Dosage: 5 MG, BID
     Route: 048
     Dates: start: 20220704

REACTIONS (3)
  - Disease progression [Recovering/Resolving]
  - Nephrolithiasis [Fatal]
  - Urosepsis [Fatal]

NARRATIVE: CASE EVENT DATE: 20201224
